FAERS Safety Report 4569826-8 (Version None)
Quarter: 2005Q1

REPORT INFORMATION
  Report Type: 
  Country: None (occurrence: None)
  Receive Date: 20050203
  Receipt Date: 20041220
  Transmission Date: 20050727
  Serious: Yes (Hospitalization, Disabling, Other)
  Sender: FDA-Public Use
  Company Number: US-MERCK-0412USA02509

PATIENT
  Age: 78 Year
  Sex: Male
  Weight: 91 kg

DRUGS (6)
  1. COUMADIN [Concomitant]
     Route: 048
     Dates: start: 20040520
  2. ZOCOR [Concomitant]
     Route: 048
     Dates: start: 20040104
  3. VIOXX [Suspect]
     Indication: ARTHRITIS
     Route: 048
     Dates: start: 19990101, end: 20040101
  4. ASPIRIN [Concomitant]
     Route: 048
  5. VITAMINS (UNSPECIFIED) [Concomitant]
     Route: 048
  6. HEPARIN [Concomitant]
     Route: 065
     Dates: start: 20040104

REACTIONS (6)
  - CEREBRAL ARTERY STENOSIS [None]
  - CEREBROVASCULAR ACCIDENT [None]
  - SCOTOMA [None]
  - TRANSIENT ISCHAEMIC ATTACK [None]
  - VASCULITIS [None]
  - VISUAL DISTURBANCE [None]
